FAERS Safety Report 21215313 (Version 2)
Quarter: 2022Q3

REPORT INFORMATION
  Report Type: Report from Study
  Country: DE (occurrence: DE)
  Receive Date: 20220816
  Receipt Date: 20220913
  Transmission Date: 20221026
  Serious: Yes (Death)
  Sender: FDA-Public Use
  Company Number: DE-NOVARTISPH-NVSC2022DE184660

PATIENT
  Sex: Male

DRUGS (2)
  1. BEOVU [Suspect]
     Active Substance: BROLUCIZUMAB-DBLL
     Indication: Neovascular age-related macular degeneration
     Dosage: 0.05 ML, ONCE/SINGLE (= 6 MG BROLUCIZUMAB), (LEFT EYE)
     Route: 031
     Dates: start: 20220208, end: 20220208
  2. BEOVU [Suspect]
     Active Substance: BROLUCIZUMAB-DBLL
     Dosage: 0.05 ML, ONCE/SINGLE (= 6 MG BROLUCIZUMAB), (LEFT EYE)
     Route: 031
     Dates: start: 20220705, end: 20220705

REACTIONS (1)
  - Death [Fatal]

NARRATIVE: CASE EVENT DATE: 20220701
